FAERS Safety Report 5612215-5 (Version None)
Quarter: 2008Q1

REPORT INFORMATION
  Report Type: 
  Country: None (occurrence: None)
  Receive Date: 20080111
  Receipt Date: 20071005
  Transmission Date: 20080703
  Serious: Yes (Other)
  Sender: FDA-Public Use
  Company Number: HQWYE696211OCT04

PATIENT
  Age: 62 Year
  Sex: Female
  Weight: 91.71 kg

DRUGS (3)
  1. PREMPRO [Suspect]
     Indication: OSTEOPOROSIS
  2. PREMARIN [Suspect]
     Indication: OSTEOPOROSIS
  3. PROVERA [Suspect]
     Indication: OSTEOPOROSIS

REACTIONS (1)
  - BREAST CANCER [None]
